FAERS Safety Report 7797893-7 (Version None)
Quarter: 2011Q4

REPORT INFORMATION
  Report Type: 
  Country: None (occurrence: None)
  Receive Date: 20111005
  Receipt Date: 20110929
  Transmission Date: 20120403
  Serious: Yes (Other)
  Sender: FDA-Public Use
  Company Number: US-ABBOTT-11P-163-0860182-00

PATIENT
  Sex: Female

DRUGS (4)
  1. ESTROGENIC SUBSTANCE [Suspect]
     Indication: HOT FLUSH
  2. UNKNOWN BLOOD PRESSURE MEDICATION [Concomitant]
     Indication: HYPERTENSION
     Route: 048
  3. ESTROGENIC SUBSTANCE [Suspect]
     Indication: MENOPAUSE
     Dates: start: 20110601, end: 20110801
  4. HUMIRA [Suspect]
     Indication: RHEUMATOID ARTHRITIS
     Route: 058
     Dates: start: 20071101

REACTIONS (2)
  - PERIPHERAL EMBOLISM [None]
  - OEDEMA PERIPHERAL [None]
